FAERS Safety Report 9174221 (Version 1)
Quarter: 2013Q1

REPORT INFORMATION
  Report Type: Spontaneous
  Country: US (occurrence: US)
  Receive Date: 20130320
  Receipt Date: 20130320
  Transmission Date: 20140127
  Serious: Yes (Death)
  Sender: FDA-Public Use
  Company Number: US-INCYTE CORPORATION-2013IN000515

PATIENT
  Sex: Male

DRUGS (2)
  1. JAKAFI [Suspect]
     Dosage: 10 MG IN MORNING AND 15 MG IN EVENING
     Route: 048
  2. JAKAFI [Suspect]
     Dosage: 20 MG IN MORNING AND 15 MG IN EVENING
     Route: 048
     Dates: start: 201207

REACTIONS (1)
  - Death [Fatal]
